FAERS Safety Report 4401452-3 (Version None)
Quarter: 2004Q3

REPORT INFORMATION
  Report Type: 
  Country: None (occurrence: None)
  Receive Date: 20040907
  Receipt Date: 20040510
  Transmission Date: 20050211
  Serious: No
  Sender: FDA-Public Use
  Company Number: US-BRISTOL-MYERS SQUIBB COMPANY-12583845

PATIENT
  Age: 55 Year
  Sex: Female
  Weight: 81 kg

DRUGS (2)
  1. COUMADIN [Suspect]
     Indication: PULMONARY THROMBOSIS
     Dosage: DOSAGE: 5MG AND 7.5MG ON ALTERNATE DAYS STOPPED ON 27-APR-2004 TEMPORARILY
     Route: 048
  2. COUMADIN [Suspect]
     Indication: SICKLE CELL ANAEMIA
     Dosage: DOSAGE: 5MG AND 7.5MG ON ALTERNATE DAYS STOPPED ON 27-APR-2004 TEMPORARILY
     Route: 048

REACTIONS (1)
  - HYPERSENSITIVITY [None]
